FAERS Safety Report 12806480 (Version 1)
Quarter: 2016Q4

REPORT INFORMATION
  Report Type: Spontaneous
  Country: US (occurrence: US)
  Receive Date: 20161004
  Receipt Date: 20161004
  Transmission Date: 20170207
  Serious: Yes (Life-Threatening)
  Sender: FDA-Public Use
  Company Number: None

PATIENT
  Age: 27 Year
  Sex: Female
  Weight: 110.22 kg

DRUGS (3)
  1. LISINOPRIL. [Suspect]
     Active Substance: LISINOPRIL
     Indication: HYPERTENSION
     Dosage: 1 PILL
     Route: 048
     Dates: start: 20120128, end: 201602
  2. ONE A DAY WOMEN VITAMINS [Concomitant]
  3. AMLODIPINE [Concomitant]
     Active Substance: AMLODIPINE BESYLATE

REACTIONS (5)
  - Abortion spontaneous [None]
  - Lip swelling [None]
  - Pharyngeal oedema [None]
  - Peripheral swelling [None]
  - Swelling face [None]

NARRATIVE: CASE EVENT DATE: 201602
